FAERS Safety Report 7149456-4 (Version None)
Quarter: 2010Q4

REPORT INFORMATION
  Report Type: 
  Country: None (occurrence: None)
  Receive Date: 20101209
  Receipt Date: 20101117
  Transmission Date: 20110411
  Serious: No
  Sender: FDA-Public Use
  Company Number: US-PFIZER INC-2010153540

PATIENT
  Age: 82 Year
  Sex: Female
  Weight: 47.619 kg

DRUGS (1)
  1. ADVIL CONGESTION RELIEF [Suspect]
     Dosage: 1 DF, 2X/DAY
     Dates: start: 20101116, end: 20101116

REACTIONS (1)
  - POLLAKIURIA [None]
